FAERS Safety Report 17179210 (Version 4)
Quarter: 2022Q1

REPORT INFORMATION
  Report Type: Report from Study
  Country: US (occurrence: None)
  Receive Date: 20191219
  Receipt Date: 20220209
  Transmission Date: 20220423
  Serious: Yes (Hospitalization, Other)
  Sender: FDA-Public Use
  Company Number: US-ROCHE-2410628

PATIENT
  Age: 62 Year
  Sex: Female
  Weight: 82 kg

DRUGS (4)
  1. ATEZOLIZUMAB [Suspect]
     Active Substance: ATEZOLIZUMAB
     Indication: Pleural mesothelioma malignant
     Dosage: 18/DEC/2018, 05/APR/2018, 08/JAN/2019 :LAST DOSE PRIOR TO SAE.
     Route: 041
     Dates: start: 20180731
  2. ATEZOLIZUMAB [Suspect]
     Active Substance: ATEZOLIZUMAB
     Indication: Mesothelioma
  3. PEMETREXED [Suspect]
     Active Substance: PEMETREXED
     Indication: Pleural mesothelioma malignant
     Dosage: 18/DEC/2018, 05/APR/2018, 08/JAN/2019 :LAST DOSE PRIOR TO SAE.
     Route: 042
     Dates: start: 20180731
  4. CISPLATIN [Suspect]
     Active Substance: CISPLATIN
     Indication: Pleural mesothelioma malignant
     Dosage: 18/DEC/2018, 05/APR/2018, 08/JAN/2019 :LAST DOSE PRIOR TO SAE.
     Route: 042
     Dates: start: 20180731

REACTIONS (13)
  - Pericardial effusion [Unknown]
  - Abdominal pain [Unknown]
  - Nausea [Unknown]
  - Vomiting [Unknown]
  - Pyrexia [Unknown]
  - Sepsis [Unknown]
  - Encephalopathy [Unknown]
  - Confusional state [Unknown]
  - Pleural effusion [Unknown]
  - Hypotension [Unknown]
  - Infusion related reaction [Recovered/Resolved with Sequelae]
  - Sinus tachycardia [Unknown]
  - Abdominal pain upper [Unknown]

NARRATIVE: CASE EVENT DATE: 20180731
